FAERS Safety Report 15813649 (Version 1)
Quarter: 2019Q1

REPORT INFORMATION
  Report Type: Spontaneous
  Country: US (occurrence: US)
  Receive Date: 20190111
  Receipt Date: 20190111
  Transmission Date: 20190417
  Serious: Yes (Other)
  Sender: FDA-Public Use
  Company Number: None

PATIENT
  Age: 51 Year
  Sex: Female
  Weight: 90 kg

DRUGS (1)
  1. OXYCODONE [Suspect]
     Active Substance: OXYCODONE
     Indication: CHOLECYSTECTOMY
     Route: 048
     Dates: start: 20190109, end: 20190109

REACTIONS (1)
  - Hallucination [None]

NARRATIVE: CASE EVENT DATE: 20190109
